FAERS Safety Report 5743577-6 (Version None)
Quarter: 2008Q2

REPORT INFORMATION
  Report Type: 
  Country: None (occurrence: None)
  Receive Date: 20080520
  Receipt Date: 20080519
  Transmission Date: 20081010
  Serious: Yes (Other)
  Sender: FDA-Public Use
  Company Number: PHHY2008CN05989

PATIENT
  Age: 91 Year
  Sex: Male

DRUGS (1)
  1. MIACALCIN [Suspect]
     Indication: COMPRESSION FRACTURE
     Dosage: 50 IU, QD
     Route: 030
     Dates: start: 20071110, end: 20071111

REACTIONS (4)
  - CHEST DISCOMFORT [None]
  - DYSPNOEA [None]
  - HYPERSENSITIVITY [None]
  - PALPITATIONS [None]
